FAERS Safety Report 7731810-0 (Version None)
Quarter: 2011Q3

REPORT INFORMATION
  Report Type: 
  Country: None (occurrence: None)
  Receive Date: 20110906
  Receipt Date: 20110629
  Transmission Date: 20111222
  Serious: No
  Sender: FDA-Public Use
  Company Number: US-AMGEN-USASP2011033230

PATIENT
  Sex: Female

DRUGS (8)
  1. LATANOPROST [Concomitant]
  2. CALCIUM WITH VITAMIN D             /00944201/ [Concomitant]
     Dosage: UNK MG, UNK
  3. AHCC [Concomitant]
  4. LISINOPRIL [Concomitant]
  5. PROLIA [Suspect]
     Indication: OSTEOPOROSIS POSTMENOPAUSAL
     Dosage: 60 MG, Q6MO
     Dates: start: 20110620
  6. SIMVASTATIN [Concomitant]
  7. HYDROCHLOROTHIAZIDE [Concomitant]
  8. METOPROLOL [Concomitant]

REACTIONS (2)
  - MALAISE [None]
  - ASTHENIA [None]
